FAERS Safety Report 9886321 (Version 1)
Quarter: 2014Q1

REPORT INFORMATION
  Report Type: Spontaneous
  Country: US (occurrence: US)
  Receive Date: 20140210
  Receipt Date: 20140210
  Transmission Date: 20141002
  Serious: No
  Sender: FDA-Public Use
  Company Number: US-PURDUE-USA-2012-0081848

PATIENT
  Sex: Female

DRUGS (2)
  1. DRONABINOL CAPSULES [Suspect]
     Indication: NAUSEA
     Dosage: 10 MG, TID PRN
     Route: 048
     Dates: start: 2011
  2. DRONABINOL CAPSULES [Suspect]
     Indication: VOMITING

REACTIONS (2)
  - Drug ineffective [Not Recovered/Not Resolved]
  - Product quality issue [Unknown]
